FAERS Safety Report 11847252 (Version 1)
Quarter: 2015Q4

REPORT INFORMATION
  Report Type: Spontaneous
  Country: US (occurrence: US)
  Receive Date: 20151217
  Receipt Date: 20151217
  Transmission Date: 20160305
  Serious: No
  Sender: FDA-Public Use
  Company Number: US-ROCHE-1505280

PATIENT
  Age: 72 Year
  Sex: Female

DRUGS (1)
  1. TAMIFLU [Suspect]
     Active Substance: OSELTAMIVIR PHOSPHATE
     Indication: INFLUENZA LIKE ILLNESS
     Route: 065

REACTIONS (6)
  - Condition aggravated [Unknown]
  - Head discomfort [Unknown]
  - Pyrexia [Unknown]
  - Cough [Unknown]
  - Eye disorder [Unknown]
  - Product quality issue [Unknown]
